FAERS Safety Report 8059252-1 (Version None)
Quarter: 2012Q1

REPORT INFORMATION
  Report Type: 
  Country: None (occurrence: None)
  Receive Date: 20120119
  Receipt Date: 20120119
  Transmission Date: 20120608
  Serious: Yes (Other)
  Sender: FDA-Public Use
  Company Number: None

PATIENT
  Age: 60 Year
  Sex: Female

DRUGS (2)
  1. RISPERIDONE [Suspect]
     Indication: BIPOLAR I DISORDER
     Dosage: 1MG 1 PO BID; 1 PO QHS ORAL
     Route: 048
     Dates: start: 20110527, end: 20110629
  2. RISPERIDONE [Suspect]
     Indication: PSYCHOTIC DISORDER
     Dosage: 1MG 1 PO BID; 1 PO QHS ORAL
     Route: 048
     Dates: start: 20110527, end: 20110629

REACTIONS (1)
  - ARTHRALGIA [None]
